FAERS Safety Report 20110354 (Version 1)
Quarter: 2021Q4

REPORT INFORMATION
  Report Type: Spontaneous
  Country: US (occurrence: US)
  Receive Date: 20211124
  Receipt Date: 20211124
  Transmission Date: 20220303
  Serious: No
  Sender: FDA-Public Use
  Company Number: US-NOVOPROD-779630

PATIENT
  Age: 33 Year
  Sex: Male

DRUGS (1)
  1. NOVOLOG [Suspect]
     Active Substance: INSULIN ASPART
     Indication: Diabetes mellitus
     Dosage: 40 IU, QD(PATIENT TAKES 10 UNITS AT BREAKFAST, 15 UNITS AT LUNCH AND DINER EVERYDAY.)
     Route: 058
     Dates: start: 202011, end: 202012

REACTIONS (3)
  - Hypoaesthesia [Recovered/Resolved]
  - Blood glucose increased [Recovered/Resolved]
  - Product quality issue [Recovered/Resolved]

NARRATIVE: CASE EVENT DATE: 20201214
